FAERS Safety Report 6507071-7 (Version None)
Quarter: 2009Q4

REPORT INFORMATION
  Report Type: 
  Country: None (occurrence: None)
  Receive Date: 20091221
  Receipt Date: 20091208
  Transmission Date: 20100525
  Serious: Yes (Other)
  Sender: FDA-Public Use
  Company Number: PHHY2009FR54819

PATIENT
  Sex: Female

DRUGS (2)
  1. EXELON [Suspect]
     Dosage: 4.6 MG/ DAILY
     Route: 062
  2. EBIXA [Suspect]

REACTIONS (7)
  - ASTHENIA [None]
  - FALL [None]
  - GAIT DISTURBANCE [None]
  - HUMERUS FRACTURE [None]
  - NAUSEA [None]
  - VENOUS THROMBOSIS [None]
  - VOMITING [None]
